FAERS Safety Report 4637418-8 (Version None)
Quarter: 2005Q2

REPORT INFORMATION
  Report Type: 
  Country: None (occurrence: None)
  Receive Date: 20050418
  Receipt Date: 20050406
  Transmission Date: 20051028
  Serious: Yes (Death)
  Sender: FDA-Public Use
  Company Number: US-JNJFOC-20041105099

PATIENT
  Sex: Female
  Weight: 68.04 kg

DRUGS (2)
  1. ORTHO EVRA [Suspect]
     Indication: CONTRACEPTION
     Route: 062
  2. MOTRIN [Concomitant]

REACTIONS (5)
  - CORONARY ARTERY DISSECTION [None]
  - MYOCARDITIS [None]
  - PULMONARY ALVEOLAR HAEMORRHAGE [None]
  - PULMONARY OEDEMA [None]
  - VASCULITIS NECROTISING [None]
